FAERS Safety Report 6759773-5 (Version None)
Quarter: 2010Q2

REPORT INFORMATION
  Report Type: 
  Country: None (occurrence: None)
  Receive Date: 20100608
  Receipt Date: 20100602
  Transmission Date: 20101027
  Serious: Yes (Other)
  Sender: FDA-Public Use
  Company Number: US-JNJFOC-20100401590

PATIENT
  Sex: Male

DRUGS (2)
  1. RISPERDAL [Suspect]
     Indication: SCHIZOPHRENIA
     Route: 048
  2. RISPERDAL [Suspect]
     Indication: DRUG USE FOR UNKNOWN INDICATION
     Route: 048

REACTIONS (7)
  - APATHY [None]
  - DEPRESSION [None]
  - ERECTILE DYSFUNCTION [None]
  - NEPHROPATHY TOXIC [None]
  - URETHRITIS NONINFECTIVE [None]
  - URINARY TRACT INFECTION [None]
  - WEIGHT INCREASED [None]
